FAERS Safety Report 10008183 (Version 1)
Quarter: 2014Q1

REPORT INFORMATION
  Report Type: Spontaneous
  Country: US (occurrence: US)
  Receive Date: 20140313
  Receipt Date: 20140313
  Transmission Date: 20141002
  Serious: No
  Sender: FDA-Public Use
  Company Number: US-GILEAD-2013-0071062

PATIENT
  Age: 63 Year
  Sex: Female

DRUGS (2)
  1. LETAIRIS [Suspect]
     Indication: PORTOPULMONARY HYPERTENSION
     Dosage: 10 MG, QD
     Dates: start: 20130207
  2. LETAIRIS [Suspect]
     Dosage: 5 MG, QD
     Route: 048

REACTIONS (3)
  - Sinus congestion [Not Recovered/Not Resolved]
  - Fluid retention [Recovered/Resolved]
  - Oedema [Recovered/Resolved]
